FAERS Safety Report 15703243 (Version 1)
Quarter: 2018Q4

REPORT INFORMATION
  Report Type: Spontaneous
  Country: US (occurrence: US)
  Receive Date: 20181209
  Receipt Date: 20181209
  Transmission Date: 20190205
  Serious: No
  Sender: FDA-Public Use
  Company Number: None

PATIENT
  Age: 40 Year
  Sex: Female
  Weight: 93.15 kg

DRUGS (8)
  1. NORETHINDRONE. [Concomitant]
     Active Substance: NORETHINDRONE
  2. METHOTREXATE. [Concomitant]
     Active Substance: METHOTREXATE
  3. MULTIVITAMIN [Concomitant]
     Active Substance: VITAMINS
  4. FOLIC ACID. [Concomitant]
     Active Substance: FOLIC ACID
  5. LISINOPRIL. [Concomitant]
     Active Substance: LISINOPRIL
  6. ENBREL [Suspect]
     Active Substance: ETANERCEPT
     Indication: RHEUMATOID ARTHRITIS
     Dates: start: 20180913, end: 20181031
  7. METOPROLOL. [Concomitant]
     Active Substance: METOPROLOL
  8. LEVOTHYROXINE. [Concomitant]
     Active Substance: LEVOTHYROXINE

REACTIONS (5)
  - Injection site vesicles [None]
  - Injection site pain [None]
  - Injection site swelling [None]
  - Injection site scab [None]
  - Injection site erythema [None]

NARRATIVE: CASE EVENT DATE: 20181031
